FAERS Safety Report 5621670-6 (Version None)
Quarter: 2008Q1

REPORT INFORMATION
  Report Type: 
  Country: None (occurrence: None)
  Receive Date: 20080206
  Receipt Date: 20080122
  Transmission Date: 20080703
  Serious: Yes (Death, Other)
  Sender: FDA-Public Use
  Company Number: US022276

PATIENT
  Age: 82 Year
  Sex: Female
  Weight: 91.63 kg

DRUGS (17)
  1. ARSENIC TRIOXIDE [Suspect]
     Indication: ACUTE MYELOID LEUKAEMIA
     Dosage: 18.5 MG QD INTRAVENOUS
     Route: 042
     Dates: start: 20080108, end: 20080117
  2. CYTARABINE [Suspect]
     Indication: ACUTE MYELOID LEUKAEMIA
     Dosage: 17.2 MG BID SUBCUTANEOUS
     Route: 058
     Dates: start: 20080108, end: 20080117
  3. CARTIA XT [Concomitant]
  4. BIOTENE [Concomitant]
  5. CEFEPIME [Concomitant]
  6. CYCLOBENZAPRINE HCL [Concomitant]
  7. DILTIAZAEM [Concomitant]
  8. ESOMEPRAZOLE MAGNESIUM [Concomitant]
  9. GABAPENTIN [Concomitant]
  10. HEPARIN LOCK-FLUSH [Concomitant]
  11. LEVOTHYROXINE SODIUM [Concomitant]
  12. MAGIC MOUTHWASH [Concomitant]
  13. POTASSIUM CHLORIDE [Concomitant]
  14. ACETAMINOPHEN [Concomitant]
  15. FUROSEMIDE [Concomitant]
  16. MAGNESIUM [Concomitant]
  17. DIPHENHYDRAMINE HCL [Concomitant]

REACTIONS (21)
  - BLOOD ALBUMIN DECREASED [None]
  - CHEST PAIN [None]
  - CONDITION AGGRAVATED [None]
  - CONFUSIONAL STATE [None]
  - DELIRIUM [None]
  - DYSPNOEA [None]
  - FLUID OVERLOAD [None]
  - FUNGAL INFECTION [None]
  - GENERAL PHYSICAL HEALTH DETERIORATION [None]
  - HAEMOGLOBIN DECREASED [None]
  - HYPOXIA [None]
  - OEDEMA PERIPHERAL [None]
  - PLATELET COUNT DECREASED [None]
  - PLEURITIC PAIN [None]
  - PULMONARY HAEMORRHAGE [None]
  - PULMONARY OEDEMA [None]
  - RESPIRATORY DISTRESS [None]
  - RESPIRATORY FAILURE [None]
  - TACHYCARDIA [None]
  - TACHYPNOEA [None]
  - WHITE BLOOD CELL COUNT DECREASED [None]
